FAERS Safety Report 14982733 (Version 1)
Quarter: 2018Q2

REPORT INFORMATION
  Report Type: Spontaneous
  Country: US (occurrence: US)
  Receive Date: 20180607
  Receipt Date: 20180607
  Transmission Date: 20180711
  Serious: Yes (Other)
  Sender: FDA-Public Use
  Company Number: US-SA-2018SA090636

PATIENT
  Age: 51 Year
  Sex: Female
  Weight: 132 kg

DRUGS (3)
  1. TAXOTERE [Suspect]
     Active Substance: DOCETAXEL
     Dosage: 75 MG,Q3W
     Route: 042
     Dates: start: 20080610, end: 20080610
  2. TAXOTERE [Suspect]
     Active Substance: DOCETAXEL
     Indication: BREAST CANCER
     Dosage: 75 MG,Q3W
     Route: 042
     Dates: start: 20080228, end: 20080228
  3. CYTOXAN [Concomitant]
     Active Substance: CYCLOPHOSPHAMIDE
     Indication: BREAST CANCER
     Dosage: 600 MG, UNK

REACTIONS (1)
  - Alopecia [Not Recovered/Not Resolved]
